FAERS Safety Report 7522341-1 (Version None)
Quarter: 2011Q2

REPORT INFORMATION
  Report Type: 
  Country: None (occurrence: None)
  Receive Date: 20110603
  Receipt Date: 20110601
  Transmission Date: 20111010
  Serious: Yes (Death)
  Sender: FDA-Public Use
  Company Number: PHHY2011US03110

PATIENT
  Sex: Female

DRUGS (2)
  1. ADVAIR DISKUS 100/50 [Concomitant]
     Indication: OBSTRUCTIVE AIRWAYS DISORDER
     Dosage: BID
     Dates: start: 20050101
  2. TOBI [Suspect]
     Indication: BRONCHIECTASIS
     Dosage: 300 MG, BID
     Dates: end: 20110401

REACTIONS (2)
  - DYSPHONIA [None]
  - DEATH [None]
